FAERS Safety Report 25848204 (Version 2)
Quarter: 2025Q4

REPORT INFORMATION
  Report Type: Spontaneous
  Country: CO (occurrence: CO)
  Receive Date: 20250925
  Receipt Date: 20251223
  Transmission Date: 20260118
  Serious: Yes (Other)
  Sender: BAYER HEALTHCARE PHARMACEUTICALS INC.
  Company Number: CO-BAYER-2025A125979

PATIENT
  Age: 28 Year
  Sex: Male
  Weight: 73 kg

DRUGS (1)
  1. KOVALTRY [Suspect]
     Active Substance: ANTIHEMOPHILIC FACTOR, HUMAN RECOMBINANT
     Indication: Factor VIII deficiency
     Dosage: 3000 IU
     Route: 042
     Dates: start: 20060101

REACTIONS (12)
  - Soft tissue haemorrhage [Unknown]
  - Road traffic accident [Unknown]
  - Limb injury [Unknown]
  - Pain in extremity [Unknown]
  - Feeling hot [Unknown]
  - Erythema [Unknown]
  - Oedema [Unknown]
  - Gait disturbance [Unknown]
  - Pain [Unknown]
  - Inflammation [Unknown]
  - Musculoskeletal disorder [Unknown]
  - Product dose omission issue [None]

NARRATIVE: CASE EVENT DATE: 20250601
